APPROVED DRUG PRODUCT: BRIMONIDINE TARTRATE
Active Ingredient: BRIMONIDINE TARTRATE
Strength: 0.2%
Dosage Form/Route: SOLUTION/DROPS;OPHTHALMIC
Application: A076372 | Product #001
Applicant: TEVA PARENTERAL MEDICINES INC
Approved: Sep 10, 2004 | RLD: No | RS: No | Type: DISCN